FAERS Safety Report 5460138-7 (Version None)
Quarter: 2007Q3

REPORT INFORMATION
  Report Type: 
  Country: None (occurrence: None)
  Receive Date: 20070919
  Receipt Date: 20070515
  Transmission Date: 20080115
  Serious: Yes (Hospitalization)
  Sender: FDA-Public Use
  Company Number: US-ASTRAZENECA-2007UW12119

PATIENT
  Sex: Male

DRUGS (6)
  1. SEROQUEL [Suspect]
     Route: 048
     Dates: start: 20070404
  2. DEPAKOTE [Concomitant]
  3. BUSPAR [Concomitant]
  4. LEXAPRO [Concomitant]
  5. TRAZODONE HCL [Concomitant]
     Dosage: 50 MG 1/2 TAB
  6. RISPERDAL [Concomitant]

REACTIONS (1)
  - PRIAPISM [None]
